FAERS Safety Report 7829451-X (Version None)
Quarter: 2011Q4

REPORT INFORMATION
  Report Type: 
  Country: None (occurrence: None)
  Receive Date: 20111020
  Receipt Date: 20111011
  Transmission Date: 20120403
  Serious: Yes (Other)
  Sender: FDA-Public Use
  Company Number: AT-ASTRAZENECA-2011SE57625

PATIENT
  Age: 72 Year
  Sex: Female
  Weight: 91 kg

DRUGS (1)
  1. SYMBICORT [Suspect]
     Indication: ASTHMA
     Dosage: 160 UG/4.5 UG, TWO TIMES A DAY
     Route: 055
     Dates: start: 20110830, end: 20110912

REACTIONS (2)
  - DRUG INEFFECTIVE [None]
  - RESPIRATORY DISTRESS [None]
